FAERS Safety Report 21994833 (Version 1)
Quarter: 2023Q1

REPORT INFORMATION
  Report Type: Spontaneous
  Country: US (occurrence: None)
  Receive Date: 20230214
  Receipt Date: 20230214
  Transmission Date: 20230418
  Serious: Yes (Life-Threatening, Hospitalization, Disabling, Other)
  Sender: FDA-Public Use
  Company Number: None

PATIENT
  Age: 31 Year
  Sex: Male
  Weight: 112.5 kg

DRUGS (1)
  1. TIANEPTINE [Suspect]
     Active Substance: TIANEPTINE
     Indication: Asthenia
     Dosage: OTHER STRENGTH : 15 BOTTLES A DAY;?FREQUENCY : AS NEEDED;?
     Route: 048
     Dates: start: 20220604

REACTIONS (5)
  - Withdrawal syndrome [None]
  - Hallucination [None]
  - Blood pressure increased [None]
  - Intentional overdose [None]
  - Substance abuse [None]

NARRATIVE: CASE EVENT DATE: 20220923
